FAERS Safety Report 20559573 (Version 1)
Quarter: 2022Q1

REPORT INFORMATION
  Report Type: Spontaneous
  Country: US (occurrence: None)
  Receive Date: 20220304
  Receipt Date: 20220304
  Transmission Date: 20220424
  Serious: Yes (Hospitalization)
  Sender: FDA-Public Use
  Company Number: None

PATIENT
  Age: 65 Year
  Sex: Male

DRUGS (13)
  1. GILENYA [Suspect]
     Active Substance: FINGOLIMOD HYDROCHLORIDE
  2. ABILIFY TAB 2MG [Concomitant]
  3. BACLOFEN [Concomitant]
     Active Substance: BACLOFEN
  4. BUPROPION TAB 150MG SR [Concomitant]
  5. EZETIMIBE TAB 10MG [Concomitant]
  6. MELATONIN TAB 1MG [Concomitant]
  7. MELOXICAM [Concomitant]
     Active Substance: MELOXICAM
  8. METFORMIN [Concomitant]
     Active Substance: METFORMIN HYDROCHLORIDE
  9. TAMSULOSIN [Concomitant]
     Active Substance: TAMSULOSIN
  10. TERBINAFINE TAB 250MG [Concomitant]
  11. VITAMIN C TAB 500MG [Concomitant]
  12. VITAMIN D CAP 50000UNT [Concomitant]
  13. WELLBUTRIN TAB 100MG [Concomitant]

REACTIONS (3)
  - COVID-19 [None]
  - Mobility decreased [None]
  - Wheelchair user [None]

NARRATIVE: CASE EVENT DATE: 20220203
